FAERS Safety Report 6145658-4 (Version None)
Quarter: 2009Q2

REPORT INFORMATION
  Report Type: 
  Country: None (occurrence: None)
  Receive Date: 20090406
  Receipt Date: 20090406
  Transmission Date: 20091009
  Serious: No
  Sender: FDA-Public Use
  Company Number: None

PATIENT
  Sex: Female
  Weight: 63.5036 kg

DRUGS (1)
  1. JANUMET [Suspect]
     Indication: DIABETES MELLITUS
     Dosage: 2 TIMES  EACH DAY ORAL
     Route: 048
     Dates: start: 20080701, end: 20090101

REACTIONS (3)
  - ALOPECIA [None]
  - INDIFFERENCE [None]
  - STRESS [None]
